FAERS Safety Report 25470630 (Version 1)
Quarter: 2025Q2

REPORT INFORMATION
  Report Type: Spontaneous
  Country: IT (occurrence: IT)
  Receive Date: 20250624
  Receipt Date: 20250624
  Transmission Date: 20250716
  Serious: Yes (Other)
  Sender: TEVA
  Company Number: None

PATIENT
  Age: 50 Year
  Sex: Female

DRUGS (1)
  1. NEOTIGASON [Suspect]
     Active Substance: ACITRETIN
     Indication: Psoriasis
     Route: 048
     Dates: start: 20241220, end: 20250605

REACTIONS (2)
  - Drug ineffective [Recovered/Resolved]
  - Psoriasis area severity index increased [Recovered/Resolved]

NARRATIVE: CASE EVENT DATE: 20250401
